FAERS Safety Report 5493378-1 (Version None)
Quarter: 2007Q4

REPORT INFORMATION
  Report Type: 
  Country: None (occurrence: None)
  Receive Date: 20071022
  Receipt Date: 20071022
  Transmission Date: 20080405
  Serious: No
  Sender: FDA-Public Use
  Company Number: None

PATIENT
  Age: 30 Year
  Sex: Male

DRUGS (1)
  1. SPORANOX [Suspect]
     Dates: start: 20060508, end: 20060710

REACTIONS (15)
  - ALANINE AMINOTRANSFERASE INCREASED [None]
  - ASPARTATE AMINOTRANSFERASE INCREASED [None]
  - BLOOD ALKALINE PHOSPHATASE INCREASED [None]
  - BLOOD BILIRUBIN INCREASED [None]
  - COLONOSCOPY ABNORMAL [None]
  - DIARRHOEA [None]
  - DUODENAL ULCER [None]
  - HAEMATOCHEZIA [None]
  - HAEMORRHOIDS [None]
  - HELICOBACTER PYLORI IDENTIFICATION TEST POSITIVE [None]
  - LIVER INJURY [None]
  - NAUSEA [None]
  - PRURITUS GENERALISED [None]
  - RASH GENERALISED [None]
  - VOMITING [None]
